FAERS Safety Report 6905815-3 (Version None)
Quarter: 2010Q3

REPORT INFORMATION
  Report Type: 
  Country: None (occurrence: None)
  Receive Date: 20100804
  Receipt Date: 20100730
  Transmission Date: 20110219
  Serious: No
  Sender: FDA-Public Use
  Company Number: TH-ROCHE-696432

PATIENT
  Sex: Female
  Weight: 57.8 kg

DRUGS (4)
  1. BEVACIZUMAB [Suspect]
     Indication: BREAST CANCER
     Dosage: ROUTE REPORTED AS IV INFUSION. DATE OF LAST DOSE PRIOR TO SAE:15 JULY 2009.
     Route: 042
     Dates: start: 20080324
  2. FLUOROURACIL [Suspect]
     Indication: BREAST CANCER
     Route: 065
  3. DOXORUBICIN HCL [Suspect]
     Indication: BREAST CANCER
     Route: 065
  4. CYCLOPHOSPHAMIDE [Suspect]
     Indication: BREAST CANCER
     Route: 065

REACTIONS (1)
  - ANAEMIA [None]
